FAERS Safety Report 21724436 (Version 1)
Quarter: 2022Q4

REPORT INFORMATION
  Report Type: Spontaneous
  Country: ES (occurrence: ES)
  Receive Date: 20221213
  Receipt Date: 20221213
  Transmission Date: 20230112
  Serious: Yes (Other)
  Sender: FDA-Public Use
  Company Number: ES-BRISTOL-MYERS SQUIBB COMPANY-2022-149574

PATIENT
  Age: 66 Year
  Sex: Female

DRUGS (3)
  1. APIXABAN [Interacting]
     Active Substance: APIXABAN
     Indication: Cerebrovascular accident prophylaxis
  2. SERTRALINE [Interacting]
     Active Substance: SERTRALINE HYDROCHLORIDE
     Indication: Product used for unknown indication
  3. VORTIOXETINE [Concomitant]
     Active Substance: VORTIOXETINE
     Indication: Product used for unknown indication

REACTIONS (3)
  - Upper gastrointestinal haemorrhage [Unknown]
  - Ecchymosis [Unknown]
  - Drug interaction [Recovered/Resolved]
